FAERS Safety Report 25195114 (Version 1)
Quarter: 2025Q2

REPORT INFORMATION
  Report Type: Spontaneous
  Country: US (occurrence: US)
  Receive Date: 20250415
  Receipt Date: 20250415
  Transmission Date: 20250716
  Serious: Yes (Life-Threatening, Hospitalization, Other)
  Sender: CIPLA
  Company Number: US-MLMSERVICE-20250331-PI462075-00050-1

PATIENT

DRUGS (1)
  1. AMLODIPINE [Suspect]
     Active Substance: AMLODIPINE BESYLATE
     Route: 065

REACTIONS (5)
  - Intentional overdose [Unknown]
  - Hypercalcaemia [Recovering/Resolving]
  - Nephrogenic diabetes insipidus [Recovering/Resolving]
  - Hypernatraemia [Recovering/Resolving]
  - Hypotension [Recovering/Resolving]
